FAERS Safety Report 20834621 (Version 1)
Quarter: 2022Q2

REPORT INFORMATION
  Report Type: Spontaneous
  Country: SE (occurrence: SE)
  Receive Date: 20220516
  Receipt Date: 20220516
  Transmission Date: 20220721
  Serious: Yes (Other)
  Sender: FDA-Public Use
  Company Number: SE-NOVARTISPH-NVSC2022SE111216

PATIENT
  Sex: Male

DRUGS (1)
  1. VOTRIENT [Suspect]
     Active Substance: PAZOPANIB HYDROCHLORIDE
     Indication: Renal cancer
     Dosage: UNK
     Route: 065
     Dates: start: 2021

REACTIONS (3)
  - Bladder cancer [Unknown]
  - Second primary malignancy [Unknown]
  - Blood urine present [Unknown]
